FAERS Safety Report 16683958 (Version 8)
Quarter: 2024Q1

REPORT INFORMATION
  Report Type: Spontaneous
  Country: AT (occurrence: AT)
  Receive Date: 20190808
  Receipt Date: 20240328
  Transmission Date: 20240409
  Serious: Yes (Hospitalization, Other)
  Sender: FDA-Public Use
  Company Number: AT-LUNDBECK-DKLU3001348

PATIENT
  Age: 72 Year
  Sex: Female

DRUGS (31)
  1. DULOXETINE HYDROCHLORIDE [Suspect]
     Active Substance: DULOXETINE HYDROCHLORIDE
     Indication: Product used for unknown indication
     Dosage: 30 MG, UNKNOWN
     Route: 048
  2. DULOXETINE HYDROCHLORIDE [Suspect]
     Active Substance: DULOXETINE HYDROCHLORIDE
     Dosage: 60 MG, DAILY
     Route: 048
  3. DULOXETINE HYDROCHLORIDE [Suspect]
     Active Substance: DULOXETINE HYDROCHLORIDE
     Dosage: UNK UNK, UNKNOWN
     Route: 048
  4. PREGABALIN [Suspect]
     Active Substance: PREGABALIN
     Indication: Product used for unknown indication
     Dosage: UNK UNK, UNKNOWN
     Route: 065
  5. ENOXAPARIN [Suspect]
     Active Substance: ENOXAPARIN
     Indication: Thrombosis prophylaxis
     Dosage: 40 MG, DAILY
     Route: 058
  6. CLOMIPRAMINE [Suspect]
     Active Substance: CLOMIPRAMINE
     Indication: Product used for unknown indication
     Dosage: 25 MG, DAILY
     Route: 042
  7. CLOMIPRAMINE [Suspect]
     Active Substance: CLOMIPRAMINE
     Dosage: 12.5 MG, DAILY
     Route: 042
  8. CLOMIPRAMINE [Suspect]
     Active Substance: CLOMIPRAMINE
     Dosage: UNK UNK, UNKNOWN
     Route: 065
  9. CLOMIPRAMINE [Suspect]
     Active Substance: CLOMIPRAMINE
     Indication: Product used for unknown indication
     Dosage: 150 MG, DAILY
     Route: 048
  10. CLOMIPRAMINE [Suspect]
     Active Substance: CLOMIPRAMINE
     Dosage: 75 MG, DAILY
     Route: 048
  11. CLOMIPRAMINE [Suspect]
     Active Substance: CLOMIPRAMINE
     Dosage: 12.5 MG, UNKNOWN
     Route: 042
  12. CLOMIPRAMINE [Suspect]
     Active Substance: CLOMIPRAMINE
     Dosage: 25 MG, UNKNOWN
     Route: 042
  13. CLOMIPRAMINE [Suspect]
     Active Substance: CLOMIPRAMINE
     Dosage: UNK UNK, UNKNOWN
     Route: 048
  14. CLOMIPRAMINE [Suspect]
     Active Substance: CLOMIPRAMINE
     Dosage: 5
     Route: 042
  15. ZOLPIDEM [Suspect]
     Active Substance: ZOLPIDEM TARTRATE
     Indication: Insomnia
     Dosage: UNK UNK, UNKNOWN
     Route: 065
  16. ZOLPIDEM [Suspect]
     Active Substance: ZOLPIDEM TARTRATE
     Dosage: UNK UNK, UNKNOWN
     Route: 065
  17. MIRTAZAPINE [Suspect]
     Active Substance: MIRTAZAPINE
     Indication: Product used for unknown indication
     Dosage: 30 MG, DAILY
     Route: 065
  18. TOPIRAMATE [Suspect]
     Active Substance: TOPIRAMATE
     Indication: Thrombosis prophylaxis
     Dosage: UNK UNK, UNKNOWN
     Route: 065
  19. MOCLOBEMIDE [Suspect]
     Active Substance: MOCLOBEMIDE
     Indication: Product used for unknown indication
     Dosage: UNK UNK, UNKNOWN
     Route: 065
  20. MOCLOBEMIDE [Suspect]
     Active Substance: MOCLOBEMIDE
     Dosage: UNK UNK, UNKNOWN
     Route: 065
  21. DIAZEPAM [Suspect]
     Active Substance: DIAZEPAM
     Indication: Sedation
     Dosage: 24 MILLIGRAM IN 4 SINGLE DOSE AS DROPS WITH FIRST REDUCTION AFTER 5 DAYS
     Route: 048
  22. DIAZEPAM [Suspect]
     Active Substance: DIAZEPAM
     Indication: Thrombosis prophylaxis
     Dosage: 24 MG, QD
     Route: 048
  23. MAPROTILINE [Suspect]
     Active Substance: MAPROTILINE
     Indication: Product used for unknown indication
     Dosage: UNK UNK, UNKNOWN
     Route: 065
  24. MAPROTILINE [Suspect]
     Active Substance: MAPROTILINE
     Dosage: UNK
     Route: 065
  25. LAMOTRIGINE [Suspect]
     Active Substance: LAMOTRIGINE
     Indication: Sedation
     Dosage: UNK UNK, UNKNOWN
     Route: 065
  26. AMITRIPTYLINE [Suspect]
     Active Substance: AMITRIPTYLINE
     Indication: Insomnia
     Dosage: UNK UNK, UNKNOWN
     Route: 065
  27. AMITRIPTYLINE [Suspect]
     Active Substance: AMITRIPTYLINE
     Dosage: UNK UNK, UNKNOWN
     Route: 065
  28. LITHIUM [Suspect]
     Active Substance: LITHIUM
     Indication: Product used for unknown indication
     Dosage: UNK UNK, UNKNOWN
     Route: 065
  29. LITHIUM [Suspect]
     Active Substance: LITHIUM
     Dosage: UNK UNK, UNKNOWN
     Route: 065
  30. LITHIUM [Suspect]
     Active Substance: LITHIUM
     Dosage: UNK UNK, UNKNOWN
     Route: 065
  31. QUETIAPINE [Suspect]
     Active Substance: QUETIAPINE
     Indication: Product used for unknown indication
     Dosage: UNK UNK, UNKNOWN
     Route: 065

REACTIONS (21)
  - Hypotension [Unknown]
  - Depression [Unknown]
  - Decreased activity [Unknown]
  - Decreased interest [Unknown]
  - Depressed mood [Unknown]
  - Chest discomfort [Unknown]
  - Fracture [Unknown]
  - Suicidal ideation [Unknown]
  - Restlessness [Recovered/Resolved]
  - Abdominal discomfort [Unknown]
  - Weight decreased [Unknown]
  - Disturbance in attention [Unknown]
  - Feeling abnormal [Unknown]
  - Decreased appetite [Unknown]
  - Sleep disorder [Unknown]
  - Dizziness [Unknown]
  - Tremor [Unknown]
  - Tachycardia [Unknown]
  - Palpitations [Unknown]
  - Nausea [Recovered/Resolved]
  - Drug ineffective [Unknown]

NARRATIVE: CASE EVENT DATE: 20140101
